FAERS Safety Report 16423051 (Version 1)
Quarter: 2019Q2

REPORT INFORMATION
  Report Type: Spontaneous
  Country: MX (occurrence: MX)
  Receive Date: 20190612
  Receipt Date: 20190612
  Transmission Date: 20190711
  Serious: Yes (Other)
  Sender: FDA-Public Use
  Company Number: MX-ANIPHARMA-2019-MX-000020

PATIENT
  Age: 53 Year
  Sex: Female
  Weight: 65 kg

DRUGS (5)
  1. ATACAND [Suspect]
     Active Substance: CANDESARTAN CILEXETIL
     Indication: HYPERTENSION
     Dosage: 1  DF Q12H
     Route: 048
     Dates: start: 2005
  2. METFORMIN [Concomitant]
     Active Substance: METFORMIN HYDROCHLORIDE
     Dosage: 1 DF TID
     Route: 048
     Dates: start: 2014
  3. CALCITRIOL. [Concomitant]
     Active Substance: CALCITRIOL
     Dosage: 1 DF Q12H
     Route: 048
     Dates: start: 2011
  4. NO MATCH [Concomitant]
     Active Substance: UNSPECIFIED INGREDIENT
     Dosage: 100 MG DAILY
     Route: 048
     Dates: start: 2011
  5. MELOX [Concomitant]
     Active Substance: MELOXICAM
     Dosage: 1 TBSP DAILY
     Route: 048
     Dates: start: 201902, end: 201905

REACTIONS (5)
  - Type 2 diabetes mellitus [Not Recovered/Not Resolved]
  - Osteopenia [Unknown]
  - Gastrooesophageal reflux disease [Unknown]
  - Drug interaction [Unknown]
  - Diarrhoea [Not Recovered/Not Resolved]

NARRATIVE: CASE EVENT DATE: 2011
